FAERS Safety Report 24610256 (Version 1)
Quarter: 2024Q4

REPORT INFORMATION
  Report Type: Spontaneous
  Country: GB (occurrence: GB)
  Receive Date: 20241112
  Receipt Date: 20241112
  Transmission Date: 20250115
  Serious: Yes (Other)
  Sender: ALEXION PHARMACEUTICALS
  Company Number: GB-MHRA-EMIS-1980-f60b98e1-ee1d-4f17-9b36-afa77602a27c

PATIENT
  Age: 57 Year
  Weight: 74 kg

DRUGS (12)
  1. DAPAGLIFLOZIN [Suspect]
     Active Substance: DAPAGLIFLOZIN
     Indication: Type 2 diabetes mellitus
     Dosage: UNK, QD
  2. DAPAGLIFLOZIN [Suspect]
     Active Substance: DAPAGLIFLOZIN
     Dosage: UNK, QD
  3. DAPAGLIFLOZIN [Suspect]
     Active Substance: DAPAGLIFLOZIN
     Dosage: UNK, QD
  4. DAPAGLIFLOZIN [Suspect]
     Active Substance: DAPAGLIFLOZIN
     Dosage: UNK, QD
  5. CYCLIZINE [Concomitant]
     Active Substance: CYCLIZINE
     Dosage: UNK, TID
  6. CYCLIZINE [Concomitant]
     Active Substance: CYCLIZINE
     Dosage: UNK, TID
     Route: 065
  7. Seqirus Quadrivalent influenza vaccine [Concomitant]
     Dosage: 1
  8. Seqirus Quadrivalent influenza vaccine [Concomitant]
     Dosage: 1
     Route: 065
  9. SPIKEVAX [Concomitant]
     Active Substance: CX-046684
     Dosage: 0.5 ML INTRAMUSCULAR ROUTE (QUALIFIER VALUE)
  10. SPIKEVAX [Concomitant]
     Active Substance: CX-046684
     Dosage: 0.5 ML INTRAMUSCULAR ROUTE (QUALIFIER VALUE)
  11. MOUNJARO [Concomitant]
     Active Substance: TIRZEPATIDE
     Indication: Type 2 diabetes mellitus
     Dosage: 0.6 MILLILITER, QW
  12. MOUNJARO [Concomitant]
     Active Substance: TIRZEPATIDE
     Dosage: 0.6 MILLILITER, QW

REACTIONS (2)
  - Muscle spasms [Unknown]
  - Muscle spasms [Recovered/Resolved]
